FAERS Safety Report 9628709 (Version 1)
Quarter: 2013Q4

REPORT INFORMATION
  Report Type: Report from Study
  Country: KR (occurrence: KR)
  Receive Date: 20131017
  Receipt Date: 20131017
  Transmission Date: 20140711
  Serious: Yes (Other)
  Sender: FDA-Public Use
  Company Number: KR-MYLANLABS-2013S1022483

PATIENT
  Sex: Male

DRUGS (2)
  1. DOCETAXEL [Suspect]
     Indication: PROSTATE CANCER
     Route: 065
  2. PREDNISOLONE [Suspect]
     Indication: PROSTATE CANCER
     Route: 065

REACTIONS (1)
  - Neutropenia [Unknown]
